FAERS Safety Report 7466998-2 (Version None)
Quarter: 2011Q2

REPORT INFORMATION
  Report Type: 
  Country: None (occurrence: None)
  Receive Date: 20110505
  Receipt Date: 20110505
  Transmission Date: 20111010
  Serious: Yes (Hospitalization)
  Sender: FDA-Public Use
  Company Number: None

PATIENT
  Age: 73 Year
  Sex: Male
  Weight: 94.5 kg

DRUGS (2)
  1. LISINOPRIL [Suspect]
     Indication: HYPERTENSION
     Dosage: 10 MG EVERY DAY PO
     Route: 048
     Dates: start: 20100828, end: 20100830
  2. LISINOPRIL [Suspect]
     Indication: AORTIC ANEURYSM
     Dosage: 10 MG EVERY DAY PO
     Route: 048
     Dates: start: 20100828, end: 20100830

REACTIONS (1)
  - RENAL FAILURE ACUTE [None]
